FAERS Safety Report 12694264 (Version 3)
Quarter: 2016Q4

REPORT INFORMATION
  Report Type: Spontaneous
  Country: ES (occurrence: ES)
  Receive Date: 20160829
  Receipt Date: 20161004
  Transmission Date: 20170207
  Serious: Yes (Other)
  Sender: FDA-Public Use
  Company Number: ES-PFIZER INC-2016402575

PATIENT
  Age: 56 Year
  Sex: Male

DRUGS (5)
  1. OXALIPLATIN. [Suspect]
     Active Substance: OXALIPLATIN
     Indication: COLON CANCER
     Dosage: 85 MG/M2, CYCLIC (ADMINISTERED AS A 2-HOUR INFUSION ON DAY 1)
     Dates: start: 201105, end: 201112
  2. FLUOROURACIL. [Concomitant]
     Active Substance: FLUOROURACIL
     Dosage: 600 MG/M2, CYCLIC (VIA AMBULATORY PUMP FOR A PERIOD OF 22 HOURS ON DAY 1 AND DAY 2 EVERY 2 WEEKS)
     Dates: start: 201105, end: 201112
  3. FOLINIC ACID [Concomitant]
     Active Substance: LEUCOVORIN
     Indication: COLON CANCER
     Dosage: 200 MG/M2, CYCLIC (ADMINISTERED AS A 2-HOUR INFUSION ON DAY 1 AND DAY 2)
     Dates: start: 201105, end: 201112
  4. FLUOROURACIL. [Concomitant]
     Active Substance: FLUOROURACIL
     Indication: COLON CANCER
     Dosage: 400 MG/M2, CYCLIC (EVERY 2 WEEKS)
     Route: 040
     Dates: start: 201105
  5. DEXTROSE 5% [Concomitant]
     Active Substance: DEXTROSE
     Dosage: 2-HOUR INFUSION IN 250 ML
     Dates: start: 201105, end: 201112

REACTIONS (1)
  - Neurotoxicity [Recovered/Resolved]
